FAERS Safety Report 15458198 (Version 2)
Quarter: 2018Q4

REPORT INFORMATION
  Report Type: Spontaneous
  Country: JP (occurrence: JP)
  Receive Date: 20181003
  Receipt Date: 20181214
  Transmission Date: 20190204
  Serious: Yes (Disabling, Other)
  Sender: FDA-Public Use
  Company Number: JP-ROCHE-2183777

PATIENT
  Age: 73 Year
  Sex: Female
  Weight: 65 kg

DRUGS (1)
  1. LUCENTIS [Suspect]
     Active Substance: RANIBIZUMAB
     Indication: RETINAL VEIN OCCLUSION
     Route: 031
     Dates: start: 20171121, end: 20171121

REACTIONS (3)
  - Cerebral infarction [Recovered/Resolved with Sequelae]
  - Abnormal behaviour [Unknown]
  - Hemianopia homonymous [Unknown]

NARRATIVE: CASE EVENT DATE: 20180330
